FAERS Safety Report 21279290 (Version 1)
Quarter: 2022Q3

REPORT INFORMATION
  Report Type: Spontaneous
  Country: US (occurrence: US)
  Receive Date: 20220901
  Receipt Date: 20220901
  Transmission Date: 20221027
  Serious: Yes (Other)
  Sender: FDA-Public Use
  Company Number: US-BRISTOL-MYERS SQUIBB COMPANY-2022-097329

PATIENT
  Age: 92 Year
  Sex: Female

DRUGS (1)
  1. REVLIMID [Suspect]
     Active Substance: LENALIDOMIDE
     Indication: Product used for unknown indication
     Dosage: TAKE 1 CAPSULE BY MOUTH DAILY FOR 3 WEEKS ON, THEN 1 WEEK OFF. REPEAT EVERY 28 DAYS
     Route: 048

REACTIONS (4)
  - Fatigue [Unknown]
  - Asphyxia [Unknown]
  - Constipation [Unknown]
  - Full blood count abnormal [Unknown]
